FAERS Safety Report 26190171 (Version 1)
Quarter: 2025Q4

REPORT INFORMATION
  Report Type: Other
  Country: EU (occurrence: EU)
  Receive Date: 20251223
  Receipt Date: 20251223
  Transmission Date: 20260118
  Serious: Yes (Hospitalization)
  Sender: ZYDUS PHARM
  Company Number: None

PATIENT

DRUGS (16)
  1. METFORMIN [Suspect]
     Active Substance: METFORMIN HYDROCHLORIDE
     Indication: Poisoning deliberate
     Dosage: 70 GRAM 1 TOTAL
     Route: 048
     Dates: start: 20251009, end: 20251009
  2. METFORMIN [Suspect]
     Active Substance: METFORMIN HYDROCHLORIDE
     Dosage: 700 MILLIGRAM EVERY 8 HOURS
     Route: 048
  3. VALPROMIDE [Suspect]
     Active Substance: VALPROMIDE
     Indication: Poisoning deliberate
     Dosage: 18000 MILLIGRAM 1 TOTAL
     Route: 048
     Dates: start: 20251009, end: 20251009
  4. VALPROMIDE [Suspect]
     Active Substance: VALPROMIDE
     Dosage: 300 MILLIGRAM DAILY
     Route: 048
  5. FELODIPINE [Suspect]
     Active Substance: FELODIPINE
     Indication: Poisoning deliberate
     Dosage: 250 MILLIGRAM 1 TOTAL
     Route: 048
     Dates: start: 20251009, end: 20251009
  6. METOPROLOL FUMARATE [Suspect]
     Active Substance: METOPROLOL FUMARATE
     Indication: Poisoning deliberate
     Dosage: 2500 MILLIGRAM 1 TOTAL
     Route: 048
     Dates: start: 20251009, end: 20251009
  7. METOPROLOL FUMARATE [Suspect]
     Active Substance: METOPROLOL FUMARATE
     Dosage: 50 MILLIGRAM DAILY
     Route: 048
  8. TRIHEXYPHENIDYL HYDROCHLORIDE [Suspect]
     Active Substance: TRIHEXYPHENIDYL HYDROCHLORIDE
     Indication: Poisoning deliberate
     Dosage: 200 MILLIGRAM 1 TOTAL
     Route: 048
     Dates: start: 20251009, end: 20251009
  9. TRIHEXYPHENIDYL HYDROCHLORIDE [Suspect]
     Active Substance: TRIHEXYPHENIDYL HYDROCHLORIDE
     Dosage: 2 MILLIGRAM EVERY 8 HOURS
     Route: 048
  10. APIXABAN [Concomitant]
     Active Substance: APIXABAN
     Indication: Pulmonary embolism
     Dosage: 5 MILLIGRAM, BID
     Route: 048
  11. INDAPAMIDE [Concomitant]
     Active Substance: INDAPAMIDE
     Indication: Product used for unknown indication
     Dosage: 2.5 MILLIGRAM, QD
     Route: 048
  12. LORMETAZEPAM [Concomitant]
     Active Substance: LORMETAZEPAM
     Indication: Product used for unknown indication
     Dosage: 2 MILLIGRAM, QD
     Route: 048
  13. LOXAPINE SUCCINATE [Concomitant]
     Active Substance: LOXAPINE SUCCINATE
     Indication: Psychotic disorder
     Dosage: 150 MILLIGRAM, QD
     Route: 048
  14. PERINDOPRIL [Concomitant]
     Active Substance: PERINDOPRIL
     Indication: Product used for unknown indication
     Dosage: 10 MILLIGRAM, QD
     Route: 048
  15. ROSUVASTATIN [Concomitant]
     Active Substance: ROSUVASTATIN
     Indication: Product used for unknown indication
     Dosage: 10 MILLIGRAM, QD
     Route: 048
  16. SITAGLIPTIN PHOSPHATE [Concomitant]
     Active Substance: SITAGLIPTIN PHOSPHATE
     Indication: Type 2 diabetes mellitus
     Dosage: 100 MILLIGRAM, QD
     Route: 048

REACTIONS (2)
  - Coma [Recovered/Resolved]
  - Intentional overdose [Recovered/Resolved]

NARRATIVE: CASE EVENT DATE: 20251009
